FAERS Safety Report 24180602 (Version 1)
Quarter: 2024Q3

REPORT INFORMATION
  Report Type: Spontaneous
  Country: US (occurrence: None)
  Receive Date: 20240805
  Receipt Date: 20240805
  Transmission Date: 20241016
  Serious: Yes (Disabling)
  Sender: Public
  Company Number: None

PATIENT
  Age: 79 Year
  Sex: Female
  Weight: 97.65 kg

DRUGS (9)
  1. LEQVIO [Suspect]
     Active Substance: INCLISIRAN SODIUM
     Indication: Blood cholesterol increased
     Dosage: OTHER FREQUENCY : 1, 3,  EVERY 6 MO?
     Route: 058
     Dates: start: 20240529
  2. METOPROLOL [Concomitant]
     Active Substance: METOPROLOL
  3. VALSARTAN [Concomitant]
     Active Substance: VALSARTAN
  4. VITAMIN D3 [Concomitant]
     Active Substance: CHOLECALCIFEROL
  5. PLAVIX [Concomitant]
     Active Substance: CLOPIDOGREL BISULFATE
  6. ELIQUIS [Concomitant]
     Active Substance: APIXABAN
  7. preservation II Areas [Concomitant]
  8. FISH OIL [Concomitant]
     Active Substance: FISH OIL
  9. fibercon sometimes [Concomitant]

REACTIONS (5)
  - Neck pain [None]
  - Musculoskeletal stiffness [None]
  - Back pain [None]
  - Arthralgia [None]
  - Diarrhoea [None]

NARRATIVE: CASE EVENT DATE: 20240710
